FAERS Safety Report 19141058 (Version 3)
Quarter: 2021Q4

REPORT INFORMATION
  Report Type: Spontaneous
  Country: US (occurrence: US)
  Receive Date: 20210415
  Receipt Date: 20211201
  Transmission Date: 20220303
  Serious: Yes (Hospitalization, Other)
  Sender: FDA-Public Use
  Company Number: US-GW PHARMA-202104USGW01564

PATIENT

DRUGS (2)
  1. EPIDIOLEX [Suspect]
     Active Substance: CANNABIDIOL
     Indication: Idiopathic generalised epilepsy
     Dosage: 480 MILLIGRAM, BID (FIRST SHIPPED ON 07 JAN 2021)
     Route: 048
     Dates: start: 202101, end: 2021
  2. EPIDIOLEX [Suspect]
     Active Substance: CANNABIDIOL
     Indication: Epilepsy
     Dosage: 800 MILLIGRAM, BID
     Route: 048
     Dates: start: 2021

REACTIONS (6)
  - Seizure [Recovering/Resolving]
  - Seizure [Unknown]
  - Product dose omission issue [Unknown]
  - Product distribution issue [Unknown]
  - Product use in unapproved indication [Unknown]
  - Treatment noncompliance [Unknown]

NARRATIVE: CASE EVENT DATE: 20210101
